FAERS Safety Report 5689095-5 (Version None)
Quarter: 2008Q1

REPORT INFORMATION
  Report Type: 
  Country: None (occurrence: None)
  Receive Date: 20080331
  Receipt Date: 19760928
  Transmission Date: 20080703
  Serious: Yes (Death)
  Sender: FDA-Public Use
  Company Number: DE-ROCHE-670300136001

PATIENT
  Age: 65 Year
  Sex: Female

DRUGS (7)
  1. VALIUM [Suspect]
     Indication: DRUG USE FOR UNKNOWN INDICATION
     Route: 048
  2. LAROXYL [Suspect]
     Dosage: GIVEN FOR 2 DAYS
     Route: 065
  3. LAROXYL [Suspect]
     Dosage: GIVEN FOR ANOTHER 2 DAYS
     Route: 065
  4. LAROXYL [Suspect]
     Route: 048
  5. RONICOL RETARD [Suspect]
     Indication: DRUG USE FOR UNKNOWN INDICATION
     Route: 048
  6. CORTICOSTEROID NOS [Concomitant]
     Route: 065
  7. LANICOR [Concomitant]
     Route: 065

REACTIONS (4)
  - DEATH [None]
  - DEHYDRATION [None]
  - HYPOTENSION [None]
  - SOMNOLENCE [None]
